FAERS Safety Report 8762761 (Version 5)
Quarter: 2013Q1

REPORT INFORMATION
  Report Type: Spontaneous
  Country: US (occurrence: US)
  Receive Date: 20120828
  Receipt Date: 20130313
  Transmission Date: 20140127
  Serious: Yes (Hospitalization, Other)
  Sender: FDA-Public Use
  Company Number: US-PFIZER INC-2012208210

PATIENT
  Age: 77 Year
  Sex: Female
  Weight: 76 kg

DRUGS (15)
  1. LIPITOR [Suspect]
     Indication: BLOOD CHOLESTEROL INCREASED
     Dosage: 10 MG, 3X/DAY
     Route: 048
  2. LIPITOR [Suspect]
     Dosage: 10 MG, 1X/DAY AS DIRECTED
  3. TOVIAZ [Concomitant]
     Dosage: 4 MG, 2X/DAY
     Route: 048
  4. TOVIAZ [Concomitant]
     Dosage: 4 MG, 3X/DAY (DIRECTED BY DOCTOR)
     Route: 048
  5. FOLIC ACID [Concomitant]
     Dosage: 400 MG, 2X/DAY
  6. FOLIC ACID [Concomitant]
     Dosage: 800 UG, 2X/DAY
  7. TYLENOL [Concomitant]
     Dosage: 600 MG, AS NEEDED
  8. TRAMADOL [Concomitant]
     Dosage: 50 MG, 3X/DAY
     Dates: end: 201204
  9. WARFARIN [Concomitant]
     Dosage: 6 MG, 1X/DAY
  10. SYNTHROID [Concomitant]
     Dosage: 100 UG, 1X/DAY
  11. HYDROCORTISONE [Concomitant]
     Dosage: 12.5 MG, 1X/DAY
  12. TYLENOL EXTRA-STRENGTH [Concomitant]
     Indication: PAIN IN EXTREMITY
     Dosage: UNK
  13. TYLENOL EXTRA-STRENGTH [Concomitant]
     Indication: BACK PAIN
  14. TYLENOL EXTRA-STRENGTH [Concomitant]
     Indication: ARTHRITIS
  15. ALDACTONE [Concomitant]
     Dosage: 50 MG, 2X/DAY

REACTIONS (9)
  - Haemorrhage [Unknown]
  - Fall [Unknown]
  - Joint injury [Unknown]
  - Prothrombin time abnormal [Unknown]
  - Contusion [Not Recovered/Not Resolved]
  - Facial pain [Not Recovered/Not Resolved]
  - Eye swelling [Not Recovered/Not Resolved]
  - Contusion [Not Recovered/Not Resolved]
  - Incontinence [Unknown]
